FAERS Safety Report 5567024-2 (Version None)
Quarter: 2007Q4

REPORT INFORMATION
  Report Type: 
  Country: None (occurrence: None)
  Receive Date: 20071218
  Receipt Date: 20071218
  Transmission Date: 20080405
  Serious: No
  Sender: FDA-Public Use
  Company Number: None

PATIENT
  Age: 31 Year
  Sex: Male
  Weight: 57.6068 kg

DRUGS (8)
  1. BUPROPION HCL [Suspect]
     Dosage: 37.5MG BID PO
     Route: 048
  2. FLUOXETINE [Concomitant]
  3. TRAZODONE HCL [Concomitant]
  4. LIBRIUM CAS [Concomitant]
  5. RISPERIDONE [Concomitant]
  6. HALDOL IMR [Concomitant]
  7. BENZTROPINE [Concomitant]
  8. LORAZEPAM [Concomitant]

REACTIONS (3)
  - ERYTHEMA [None]
  - OEDEMA PERIPHERAL [None]
  - THINKING ABNORMAL [None]
